FAERS Safety Report 24790739 (Version 1)
Quarter: 2024Q4

REPORT INFORMATION
  Report Type: Spontaneous
  Country: GB (occurrence: GB)
  Receive Date: 20241230
  Receipt Date: 20241230
  Transmission Date: 20250114
  Serious: Yes (Other)
  Sender: SK LIFE SCIENCE
  Company Number: GB-ACRAF SpA-2024-036652

PATIENT

DRUGS (1)
  1. XCOPRI [Suspect]
     Active Substance: CENOBAMATE
     Indication: Product used for unknown indication
     Dosage: UNKN (100 MG)
     Route: 065

REACTIONS (1)
  - Self-destructive behaviour [Unknown]

NARRATIVE: CASE EVENT DATE: 20241215
